FAERS Safety Report 8076579-8 (Version None)
Quarter: 2012Q1

REPORT INFORMATION
  Report Type: 
  Country: None (occurrence: None)
  Receive Date: 20120127
  Receipt Date: 20120109
  Transmission Date: 20120608
  Serious: Yes (Other)
  Sender: FDA-Public Use
  Company Number: CA-JNJFOC-20120109953

PATIENT
  Sex: Female
  Weight: 48 kg

DRUGS (10)
  1. COZAAR [Concomitant]
  2. SULFASALAZINE [Concomitant]
  3. REMICADE [Suspect]
     Indication: RHEUMATOID ARTHRITIS
     Dosage: FIXED DOSE
     Dates: start: 20060701
  4. NOVASEN [Concomitant]
  5. FERROUS SULFATE TAB [Concomitant]
  6. CRESTOR [Concomitant]
  7. PANTOPRAZOLE SODIUM [Concomitant]
  8. CALCIUM AND VITAMIN D [Concomitant]
  9. SYNTHROID [Concomitant]
  10. FOSAMAX [Concomitant]

REACTIONS (1)
  - BONE INFARCTION [None]
